FAERS Safety Report 8280443-9 (Version None)
Quarter: 2012Q2

REPORT INFORMATION
  Report Type: 
  Country: None (occurrence: None)
  Receive Date: 20120412
  Receipt Date: 20120103
  Transmission Date: 20120825
  Serious: No
  Sender: FDA-Public Use
  Company Number: US-ASTRAZENECA-2011SE73516

PATIENT
  Age: 47 Year
  Sex: Female

DRUGS (3)
  1. TOPROL-XL [Suspect]
     Route: 048
  2. CALCIUM CARBONATE [Concomitant]
  3. NEXIUM [Suspect]
     Route: 048

REACTIONS (5)
  - WRONG DRUG ADMINISTERED [None]
  - DYSPHAGIA [None]
  - SLEEP DISORDER DUE TO GENERAL MEDICAL CONDITION, INSOMNIA TYPE [None]
  - DYSPEPSIA [None]
  - DRUG DOSE OMISSION [None]
